FAERS Safety Report 20475287 (Version 1)
Quarter: 2022Q1

REPORT INFORMATION
  Report Type: Report from Study
  Country: IT (occurrence: None)
  Receive Date: 20220215
  Receipt Date: 20220215
  Transmission Date: 20220423
  Serious: Yes (Hospitalization)
  Sender: FDA-Public Use
  Company Number: IT-ROCHE-3020878

PATIENT
  Age: 30 Year
  Sex: Female

DRUGS (3)
  1. DERAZANTINIB [Suspect]
     Active Substance: DERAZANTINIB
     Indication: Transitional cell carcinoma
     Route: 048
     Dates: start: 20211110
  2. DERAZANTINIB [Suspect]
     Active Substance: DERAZANTINIB
     Route: 048
     Dates: start: 20211130
  3. ATEZOLIZUMAB [Suspect]
     Active Substance: ATEZOLIZUMAB
     Indication: Transitional cell carcinoma
     Route: 042
     Dates: start: 20211110

REACTIONS (2)
  - Constipation [Recovered/Resolved]
  - Constipation [Recovered/Resolved]

NARRATIVE: CASE EVENT DATE: 20211124
